FAERS Safety Report 19721095 (Version 1)
Quarter: 2021Q3

REPORT INFORMATION
  Report Type: Spontaneous
  Country: DE (occurrence: DE)
  Receive Date: 20210819
  Receipt Date: 20210819
  Transmission Date: 20211014
  Serious: Yes (Hospitalization, Other)
  Sender: FDA-Public Use
  Company Number: DE-TEVA-2021-DE-1941930

PATIENT
  Age: 68 Year
  Sex: Male
  Weight: 67 kg

DRUGS (8)
  1. OLANZAPIN [Suspect]
     Active Substance: OLANZAPINE
     Dosage: 10 MG, 1?0?2?0
  2. LORAZEPAM. [Concomitant]
     Active Substance: LORAZEPAM
     Dosage: 2 MILLIGRAM DAILY; 1 MG, 1?0?1?0
  3. RISPERIDON [Suspect]
     Active Substance: RISPERIDONE
     Dosage: 1 MILLIGRAM DAILY;  0?0?1?0
  4. SODIUM PICOSULFATE [Concomitant]
     Active Substance: SODIUM PICOSULFATE
     Dosage: 7.5 MG, AS NEEDED
  5. FOLSAURE [Concomitant]
     Active Substance: FOLIC ACID
     Dosage: 5 MILLIGRAM DAILY; 5 MG, 1?0?0?0
  6. BIPERIDEN [Concomitant]
     Active Substance: BIPERIDEN
     Dosage: 4 MG, 1?0.5?0?0
  7. COLECALCIFEROL (VITAMIN D) [Concomitant]
     Active Substance: CHOLECALCIFEROL
     Dosage: 25 DOSAGE FORMS DAILY; 1000 IE, 25?0?0?0
  8. LORAZEPAM. [Concomitant]
     Active Substance: LORAZEPAM
     Dosage: 0.5 MG, AS NEEDED

REACTIONS (6)
  - General physical health deterioration [Unknown]
  - Oedema peripheral [Unknown]
  - Renal impairment [Unknown]
  - Abdominal distension [Unknown]
  - Abdominal pain [Unknown]
  - Pyrexia [Unknown]
